FAERS Safety Report 24387488 (Version 1)
Quarter: 2024Q4

REPORT INFORMATION
  Report Type: Spontaneous
  Country: US (occurrence: US)
  Receive Date: 20241002
  Receipt Date: 20241002
  Transmission Date: 20250114
  Serious: No
  Sender: TAKEDA
  Company Number: US-TAKEDA-2024TUS096079

PATIENT

DRUGS (8)
  1. GATTEX [Suspect]
     Active Substance: TEDUGLUTIDE\WATER
     Indication: Product used for unknown indication
     Dosage: 5 MILLIGRAM
     Route: 058
  2. GATTEX [Suspect]
     Active Substance: TEDUGLUTIDE\WATER
     Indication: Product used for unknown indication
     Dosage: 5 MILLIGRAM
     Route: 058
  3. GATTEX [Suspect]
     Active Substance: TEDUGLUTIDE\WATER
     Indication: Product used for unknown indication
     Dosage: 5 MILLIGRAM
     Route: 058
  4. GATTEX [Suspect]
     Active Substance: TEDUGLUTIDE\WATER
     Indication: Product used for unknown indication
     Dosage: 5 MILLIGRAM
     Route: 058
  5. GATTEX [Suspect]
     Active Substance: TEDUGLUTIDE\WATER
     Dosage: UNK
     Route: 065
  6. GATTEX [Suspect]
     Active Substance: TEDUGLUTIDE\WATER
     Dosage: UNK
     Route: 065
  7. GATTEX [Suspect]
     Active Substance: TEDUGLUTIDE\WATER
     Dosage: UNK
     Route: 065
  8. GATTEX [Suspect]
     Active Substance: TEDUGLUTIDE\WATER
     Dosage: UNK
     Route: 065

REACTIONS (2)
  - Product reconstitution quality issue [Unknown]
  - Syringe issue [Unknown]
